FAERS Safety Report 7919137-5 (Version None)
Quarter: 2011Q4

REPORT INFORMATION
  Report Type: 
  Country: None (occurrence: None)
  Receive Date: 20111117
  Receipt Date: 20111019
  Transmission Date: 20120403
  Serious: Yes (Other)
  Sender: FDA-Public Use
  Company Number: JP-ROCHE-1010648

PATIENT
  Sex: Male

DRUGS (6)
  1. PREDNISOLONE [Concomitant]
     Route: 048
  2. SPANIDIN [Concomitant]
     Route: 042
  3. CYCLOSPORINE [Concomitant]
     Route: 048
  4. MYCOPHENOLATE MOFETIL (CELLCEPT) [Suspect]
     Indication: PROPHYLAXIS AGAINST TRANSPLANT REJECTION
     Route: 048
  5. TACROLIMUS [Concomitant]
     Route: 048
  6. BASILIXIMAB [Concomitant]
     Route: 042

REACTIONS (5)
  - NECROTISING HERPETIC RETINOPATHY [None]
  - HERPES ZOSTER [None]
  - ATRIAL FIBRILLATION [None]
  - CARDIAC FAILURE [None]
  - URINARY RETENTION [None]
